FAERS Safety Report 14700884 (Version 5)
Quarter: 2022Q1

REPORT INFORMATION
  Report Type: Spontaneous
  Country: US (occurrence: None)
  Receive Date: 20180330
  Receipt Date: 20220322
  Transmission Date: 20220423
  Serious: Yes (Other)
  Sender: FDA-Public Use
  Company Number: 2018SE39093

PATIENT
  Age: 608 Month
  Sex: Female
  Weight: 93.2 kg

DRUGS (55)
  1. NEXIUM [Suspect]
     Active Substance: ESOMEPRAZOLE MAGNESIUM
     Indication: Gastrooesophageal reflux disease
     Route: 048
     Dates: start: 201001, end: 201601
  2. NEXIUM [Suspect]
     Active Substance: ESOMEPRAZOLE MAGNESIUM
     Indication: Gastrooesophageal reflux disease
     Route: 048
     Dates: start: 20100101, end: 20161231
  3. NEXIUM 24HR [Suspect]
     Active Substance: ESOMEPRAZOLE MAGNESIUM
     Route: 048
     Dates: start: 201001, end: 201601
  4. PRILOSEC [Suspect]
     Active Substance: OMEPRAZOLE MAGNESIUM
     Indication: Gastrooesophageal reflux disease
     Route: 048
     Dates: start: 201001, end: 201601
  5. PRILOSEC [Suspect]
     Active Substance: OMEPRAZOLE MAGNESIUM
     Indication: Gastrooesophageal reflux disease
     Route: 048
     Dates: start: 20100101, end: 20161231
  6. PRILOSEC [Suspect]
     Active Substance: OMEPRAZOLE MAGNESIUM
     Indication: Gastrooesophageal reflux disease
     Dosage: GENERIC
     Route: 065
     Dates: start: 20100101, end: 20161231
  7. PRILOSEC OTC [Suspect]
     Active Substance: OMEPRAZOLE MAGNESIUM
     Indication: Gastrooesophageal reflux disease
     Route: 048
     Dates: start: 201001, end: 201601
  8. PRILOSEC OTC [Suspect]
     Active Substance: OMEPRAZOLE MAGNESIUM
     Indication: Gastrooesophageal reflux disease
     Route: 048
     Dates: start: 20100101, end: 20161231
  9. DEXILANT [Suspect]
     Active Substance: DEXLANSOPRAZOLE
     Indication: Gastrooesophageal reflux disease
     Route: 065
     Dates: start: 201001, end: 201601
  10. DEXILANT [Suspect]
     Active Substance: DEXLANSOPRAZOLE
     Indication: Gastrooesophageal reflux disease
     Route: 065
     Dates: start: 20120625, end: 20120625
  11. DEXILANT [Suspect]
     Active Substance: DEXLANSOPRAZOLE
     Indication: Gastrooesophageal reflux disease
     Route: 065
     Dates: start: 20120526, end: 20120730
  12. DEXILANT [Suspect]
     Active Substance: DEXLANSOPRAZOLE
     Indication: Gastrooesophageal reflux disease
     Route: 065
     Dates: start: 20120625, end: 20120730
  13. PREVACID [Suspect]
     Active Substance: LANSOPRAZOLE
     Route: 065
     Dates: start: 201001, end: 201601
  14. PREVACID 24 HR [Suspect]
     Active Substance: LANSOPRAZOLE
     Route: 065
     Dates: start: 201001, end: 201601
  15. PROTONIX [Suspect]
     Active Substance: PANTOPRAZOLE SODIUM
     Route: 065
     Dates: start: 201001, end: 201601
  16. FUROSEMIDE [Concomitant]
     Active Substance: FUROSEMIDE
     Dates: start: 20130124, end: 20151005
  17. FERROUS SULFATE [Concomitant]
     Active Substance: FERROUS SULFATE
  18. NYSTOP [Concomitant]
     Active Substance: NYSTATIN
  19. SPIRONOLACTONE [Concomitant]
     Active Substance: SPIRONOLACTONE
  20. MONTELUKAST [Concomitant]
     Active Substance: MONTELUKAST SODIUM
  21. SYNTHROID [Concomitant]
     Active Substance: LEVOTHYROXINE SODIUM
  22. GABAPENTIN [Concomitant]
     Active Substance: GABAPENTIN
     Indication: Pain
     Dates: start: 20141217, end: 20160719
  23. CYCLOBENZAPRINE [Concomitant]
     Active Substance: CYCLOBENZAPRINE
     Indication: Musculoskeletal stiffness
     Dates: start: 20140818, end: 20150107
  24. BISACODYL [Concomitant]
     Active Substance: BISACODYL
  25. LOSARTAN [Concomitant]
     Active Substance: LOSARTAN
     Indication: Hypertension
     Dates: start: 20141129, end: 20160207
  26. PREMARIN [Concomitant]
     Active Substance: ESTROGENS, CONJUGATED
  27. DIAZEPAM [Concomitant]
     Active Substance: DIAZEPAM
  28. EPIPEN [Concomitant]
     Active Substance: EPINEPHRINE
  29. HYDROCODONE [Concomitant]
     Active Substance: HYDROCODONE
  30. MORPHINE [Concomitant]
     Active Substance: MORPHINE
     Dates: start: 20130623
  31. CEPHALEXIN [Concomitant]
     Active Substance: CEPHALEXIN
  32. ZOLPIDEM [Concomitant]
     Active Substance: ZOLPIDEM TARTRATE
  33. TOPIRAMATE [Concomitant]
     Active Substance: TOPIRAMATE
  34. IBUPROFEN [Concomitant]
     Active Substance: IBUPROFEN
     Indication: Pain
     Route: 065
     Dates: start: 20130623
  35. ROPINIROLE [Concomitant]
     Active Substance: ROPINIROLE
  36. CLINDAMYCIN [Concomitant]
     Active Substance: CLINDAMYCIN
  37. FLUCONAZOLE [Concomitant]
     Active Substance: FLUCONAZOLE
  38. NAPROXEN [Concomitant]
     Active Substance: NAPROXEN
  39. SINGULAIR [Concomitant]
     Active Substance: MONTELUKAST SODIUM
  40. CIPROFLOXACIN [Concomitant]
     Active Substance: CIPROFLOXACIN
     Indication: Infection
     Dates: start: 20111027, end: 20160128
  41. TOPIRAMATE [Concomitant]
     Active Substance: TOPIRAMATE
  42. PROVENTIL HFA [Concomitant]
     Active Substance: ALBUTEROL SULFATE
  43. CITALOPRAM [Concomitant]
     Active Substance: CITALOPRAM HYDROBROMIDE
  44. MORPHINE SULFATE [Concomitant]
     Active Substance: MORPHINE SULFATE
  45. METHYLPREDNISOLONE [Concomitant]
     Active Substance: METHYLPREDNISOLONE
  46. PRAMIPEXOLE [Concomitant]
     Active Substance: PRAMIPEXOLE
  47. ADVAIR HFA [Concomitant]
     Active Substance: FLUTICASONE PROPIONATE\SALMETEROL XINAFOATE
  48. SERTRALINE [Concomitant]
     Active Substance: SERTRALINE HYDROCHLORIDE
  49. QUETIAPINE FUMARATE [Concomitant]
     Active Substance: QUETIAPINE FUMARATE
  50. LEVOTHYROXINE [Concomitant]
     Active Substance: LEVOTHYROXINE
  51. FERROUS SULFATE [Concomitant]
     Active Substance: FERROUS SULFATE
  52. FENTANYL [Concomitant]
     Active Substance: FENTANYL
  53. VENTOLIN HFA [Concomitant]
     Active Substance: ALBUTEROL SULFATE
  54. KETOROLAC [Concomitant]
     Active Substance: KETOROLAC TROMETHAMINE
  55. MIRALAX [Concomitant]
     Active Substance: POLYETHYLENE GLYCOL 3350

REACTIONS (4)
  - Chronic kidney disease [Not Recovered/Not Resolved]
  - Acute kidney injury [Unknown]
  - Renal injury [Unknown]
  - Renal failure [Unknown]

NARRATIVE: CASE EVENT DATE: 20141101
